FAERS Safety Report 4463744-1 (Version None)
Quarter: 2004Q3

REPORT INFORMATION
  Report Type: 
  Country: None (occurrence: None)
  Receive Date: 20040929
  Receipt Date: 20040914
  Transmission Date: 20050211
  Serious: Yes (Hospitalization)
  Sender: FDA-Public Use
  Company Number: WAES 0312AUS00032

PATIENT
  Age: 71 Year
  Sex: Female

DRUGS (11)
  1. TAB EZETIMIBE 10 MG [Suspect]
     Indication: MIXED HYPERLIPIDAEMIA
     Dosage: 10 MG DAILY PO
     Route: 048
     Dates: start: 20030526, end: 20030824
  2. TAB EZETIMIBE 10 MG [Suspect]
     Indication: MIXED HYPERLIPIDAEMIA
     Dosage: 10 MG DAILY PO
     Route: 048
     Dates: start: 20030825, end: 20031120
  3. TAB EZETIMIBE 10 MG [Suspect]
     Indication: MIXED HYPERLIPIDAEMIA
     Dosage: 10 MG DAILY PO
     Route: 048
     Dates: start: 20031209
  4. FENOFIBRATE [Suspect]
     Indication: MIXED HYPERLIPIDAEMIA
     Dosage: 160 MG DAILY PO
     Route: 048
     Dates: start: 20030526, end: 20030824
  5. FENOFIBRATE [Suspect]
     Indication: MIXED HYPERLIPIDAEMIA
     Dosage: 160 MG DAILY PO
     Route: 048
     Dates: start: 20030825, end: 20031120
  6. FENOFIBRATE [Suspect]
     Indication: MIXED HYPERLIPIDAEMIA
     Dosage: 160 MG DAILY PO
     Route: 048
     Dates: start: 20031209
  7. ASPIRIN [Concomitant]
  8. CELCOXIB [Concomitant]
  9. CITALOPRAM HYDROBROMIDE [Concomitant]
  10. ESTRADIOL [Concomitant]
  11. OXAZEPAM [Concomitant]

REACTIONS (8)
  - CHOLECYSTITIS ACUTE [None]
  - COLLAPSE OF LUNG [None]
  - HEPATIC STEATOSIS [None]
  - LUNG CONSOLIDATION [None]
  - LUNG DISORDER [None]
  - PAIN [None]
  - PLEURAL EFFUSION [None]
  - PULMONARY THROMBOSIS [None]
